FAERS Safety Report 21505340 (Version 1)
Quarter: 2022Q4

REPORT INFORMATION
  Report Type: Spontaneous
  Country: EG (occurrence: EG)
  Receive Date: 20221026
  Receipt Date: 20221026
  Transmission Date: 20230112
  Serious: Yes (Hospitalization, Other)
  Sender: FDA-Public Use
  Company Number: EG-NOVOPROD-970468

PATIENT
  Age: 394 Month
  Sex: Female

DRUGS (3)
  1. NOVORAPID [Suspect]
     Active Substance: INSULIN ASPART
     Indication: Diabetes mellitus
     Dosage: 26 IU, QD (8U/MORNING AND10 U/ AFTER LUNCH AND 8 U/NIGHT)
     Route: 058
  2. NOVORAPID [Suspect]
     Active Substance: INSULIN ASPART
     Dosage: 3 TIMES DAILY ACCORDING TO BGL (5 U/ 150 -199 MG/DL AND 10 U/ 200 -249 MG/DL AND 15 U /250 -300 MG/D
     Route: 058
  3. FOLIC ACID [Concomitant]
     Active Substance: FOLIC ACID
     Indication: Congenital anomaly
     Dosage: TWICE DAILY
     Route: 048

REACTIONS (3)
  - Abortion [Unknown]
  - Hypoglycaemia [Unknown]
  - Maternal exposure during pregnancy [Recovered/Resolved]
